FAERS Safety Report 10341864 (Version 2)
Quarter: 2014Q3

REPORT INFORMATION
  Report Type: Report from Study
  Country: AU (occurrence: AU)
  Receive Date: 20140725
  Receipt Date: 20140903
  Transmission Date: 20150326
  Serious: Yes (Death, Hospitalization)
  Sender: FDA-Public Use
  Company Number: PHHY2014AU090772

PATIENT
  Age: 89 Year
  Sex: Female

DRUGS (13)
  1. CLOZARIL [Suspect]
     Active Substance: CLOZAPINE
     Indication: SCHIZOPHRENIA
     Dosage: 200 MG, DAILY
     Route: 048
     Dates: start: 20021003, end: 20140721
  2. DIAZEPAM. [Concomitant]
     Active Substance: DIAZEPAM
     Dosage: UNK UKN, UNK
  3. FLUDROCORTISONE [Concomitant]
     Active Substance: FLUDROCORTISONE
     Dosage: UNK UKN, UNK
  4. PARIET [Concomitant]
     Active Substance: RABEPRAZOLE SODIUM
     Dosage: UNK UKN, UNK
  5. SENNA [Concomitant]
     Active Substance: SENNA LEAF\SENNOSIDES\SENNOSIDES A AND B
     Dosage: UNK UKN, UNK
  6. OSTEVIT-D [Concomitant]
     Dosage: UNK UKN, UNK
  7. METOPROLOL [Concomitant]
     Active Substance: METOPROLOL
     Dosage: UNK UKN, UNK
  8. COLOXYL [Concomitant]
     Dosage: UNK UKN, UNK
  9. IRON SUPPLEMENTS [Concomitant]
     Active Substance: IRON
     Dosage: UNK UKN, UNK
  10. GLICLAZIDE [Concomitant]
     Active Substance: GLICLAZIDE
     Dosage: UNK UKN, UNK
  11. HALOPERIDOL. [Concomitant]
     Active Substance: HALOPERIDOL
     Dosage: UNK UKN, UNK
  12. LIPITOR [Concomitant]
     Active Substance: ATORVASTATIN CALCIUM
     Dosage: UNK UKN, UNK
  13. VITAMIN B12 [Concomitant]
     Active Substance: CYANOCOBALAMIN
     Dosage: UNK UKN, UNK

REACTIONS (15)
  - Pneumonia aspiration [Fatal]
  - Haemoglobin decreased [Unknown]
  - Pleural effusion [Unknown]
  - Neutrophil count increased [Unknown]
  - Blood glucose increased [Unknown]
  - Blood sodium decreased [Unknown]
  - Blood bicarbonate increased [Unknown]
  - Vascular dementia [Fatal]
  - Pneumothorax [Fatal]
  - Blood urea increased [Unknown]
  - Altered state of consciousness [Unknown]
  - Pallor [Unknown]
  - General physical health deterioration [Fatal]
  - Blood creatinine decreased [Unknown]
  - Obstructive airways disorder [Unknown]

NARRATIVE: CASE EVENT DATE: 20140721
